FAERS Safety Report 21696552 (Version 1)
Quarter: 2022Q4

REPORT INFORMATION
  Report Type: Spontaneous
  Country: ES (occurrence: ES)
  Receive Date: 20221207
  Receipt Date: 20221207
  Transmission Date: 20230113
  Serious: Yes (Hospitalization, Other)
  Sender: FDA-Public Use
  Company Number: None

PATIENT
  Age: 38 Year
  Sex: Male
  Weight: 253 kg

DRUGS (12)
  1. DEXAMETHASONE [Suspect]
     Active Substance: DEXAMETHASONE
     Indication: COVID-19
     Route: 042
  2. DEXAMETHASONE [Suspect]
     Active Substance: DEXAMETHASONE
     Route: 042
  3. DEXAMETHASONE [Suspect]
     Active Substance: DEXAMETHASONE
  4. DEXAMETHASONE [Suspect]
     Active Substance: DEXAMETHASONE
  5. BUDESONIDE [Concomitant]
     Active Substance: BUDESONIDE
     Indication: COVID-19
  6. FORMOTEROL [Concomitant]
     Active Substance: FORMOTEROL
     Indication: COVID-19
  7. ENOXAPARIN [Concomitant]
     Active Substance: ENOXAPARIN
     Indication: COVID-19
     Route: 058
  8. ENOXAPARIN [Concomitant]
     Active Substance: ENOXAPARIN
     Route: 058
  9. DEXTROMETHORPHAN [Concomitant]
     Active Substance: DEXTROMETHORPHAN
     Indication: COVID-19
  10. LOSARTAN [Concomitant]
     Active Substance: LOSARTAN
     Indication: Blood pressure measurement
  11. TOCILIZUMAB [Concomitant]
     Active Substance: TOCILIZUMAB
     Indication: Respiratory failure
     Dosage: 200/10
  12. TOCILIZUMAB [Concomitant]
     Active Substance: TOCILIZUMAB
     Route: 042

REACTIONS (2)
  - Suicidal behaviour [Recovered/Resolved]
  - Neuropsychiatric symptoms [Recovered/Resolved]
